FAERS Safety Report 25346619 (Version 1)
Quarter: 2025Q2

REPORT INFORMATION
  Report Type: Spontaneous
  Country: US (occurrence: US)
  Receive Date: 20250522
  Receipt Date: 20250522
  Transmission Date: 20250717
  Serious: Yes (Other)
  Sender: CATALYST PHARMA
  Company Number: US-CATALYST PHARMACEUTICALS, INC-US-CATA-22-02642

PATIENT
  Sex: Female
  Weight: 43.537 kg

DRUGS (21)
  1. FIRDAPSE [Suspect]
     Active Substance: AMIFAMPRIDINE PHOSPHATE
     Indication: Myasthenic syndrome
     Dosage: TITRATION; 1 HALF TABLET 3 TIMES DAILY FOR 7 DAYS, IF NEEDED MAY INCREASE BY 5 MG EVERY 7 DAYS TO A
     Route: 048
     Dates: start: 20221015, end: 20221025
  2. FIRDAPSE [Suspect]
     Active Substance: AMIFAMPRIDINE PHOSPHATE
     Dosage: 10 MILLIGRAM, TID
     Route: 048
     Dates: start: 20221025, end: 20221031
  3. FIRDAPSE [Suspect]
     Active Substance: AMIFAMPRIDINE PHOSPHATE
     Dosage: 5 MILLIGRAM, TID
     Route: 048
     Dates: start: 20221031, end: 202211
  4. FIRDAPSE [Suspect]
     Active Substance: AMIFAMPRIDINE PHOSPHATE
     Dosage: 55 MILLIGRAM, QD
     Route: 048
     Dates: start: 202211
  5. FIRDAPSE [Suspect]
     Active Substance: AMIFAMPRIDINE PHOSPHATE
     Dosage: 1 HALF TABLET 4 TIMES A DAY
     Route: 048
     Dates: start: 20250303
  6. FOCUS FACTOR [Concomitant]
     Indication: Hypovitaminosis
     Dosage: 1 TABLET DAILY
     Route: 065
  7. PROBIOTICS NOS [Concomitant]
     Active Substance: PROBIOTICS NOS
     Indication: Gastrointestinal disorder
     Dosage: ONE DAILY
     Route: 048
  8. VITAMINS [Concomitant]
     Active Substance: VITAMINS
     Indication: Product used for unknown indication
     Dosage: UNK, QD
     Route: 065
  9. VITAMIN D3 [Concomitant]
     Active Substance: CHOLECALCIFEROL
     Indication: Hypovitaminosis
     Dosage: 800 IU DAILY
     Route: 065
  10. BENADRYL [Concomitant]
     Active Substance: DIPHENHYDRAMINE HYDROCHLORIDE
     Indication: Pruritus
     Dosage: 25 MG AT BEDTIME
     Route: 065
  11. BOTOX [Concomitant]
     Active Substance: ONABOTULINUMTOXINA
     Indication: Hypertonic bladder
     Route: 065
  12. ESTRADIOL [Concomitant]
     Active Substance: ESTRADIOL
     Indication: Menopause
     Dosage: 10 MCG TWICE A WEEK
     Route: 067
  13. FEXOFENADINE [Concomitant]
     Active Substance: FEXOFENADINE HYDROCHLORIDE
     Indication: Pruritus
     Dosage: 180 MG DAILY
     Route: 065
  14. OMEPRAZOLE [Concomitant]
     Active Substance: OMEPRAZOLE
     Indication: Gastrooesophageal reflux disease
     Dosage: 40 MG DAILY
     Route: 065
  15. PREDNISONE [Concomitant]
     Active Substance: PREDNISONE
     Indication: Myasthenic syndrome
     Dosage: 10 MG DAILY
     Route: 065
  16. PYLERA [Concomitant]
     Active Substance: BISMUTH SUBCITRATE POTASSIUM\METRONIDAZOLE\TETRACYCLINE HYDROCHLORIDE
     Indication: Helicobacter infection
     Dosage: DAILY
     Route: 065
  17. PYRIDOSTIGMINE [Concomitant]
     Active Substance: PYRIDOSTIGMINE
     Indication: Myasthenic syndrome
     Dosage: 180 MG AT BEDTIME
     Route: 065
  18. PYRIDOSTIGMINE [Concomitant]
     Active Substance: PYRIDOSTIGMINE
     Indication: Myasthenic syndrome
     Dosage: 60 MG 3 TIMES A DAY
     Route: 065
  19. QUERCETIN [Concomitant]
     Active Substance: QUERCETIN
     Indication: Hypovitaminosis
     Dosage: 500 MG DAILY
     Route: 065
  20. RITUXAN [Concomitant]
     Active Substance: RITUXIMAB
     Indication: Myasthenic syndrome
     Route: 042
  21. SOTYKTU [Concomitant]
     Active Substance: DEUCRAVACITINIB
     Indication: Psoriasis
     Dosage: 6 MG DAILY
     Route: 065

REACTIONS (16)
  - Neuropathy peripheral [Not Recovered/Not Resolved]
  - Taste disorder [Not Recovered/Not Resolved]
  - Lacrimation disorder [Not Recovered/Not Resolved]
  - Saliva altered [Not Recovered/Not Resolved]
  - Ageusia [Not Recovered/Not Resolved]
  - Ocular discomfort [Not Recovered/Not Resolved]
  - Tinnitus [Not Recovered/Not Resolved]
  - Eye irritation [Not Recovered/Not Resolved]
  - Oral discomfort [Not Recovered/Not Resolved]
  - Movement disorder [Not Recovered/Not Resolved]
  - Brain fog [Not Recovered/Not Resolved]
  - Malaise [Not Recovered/Not Resolved]
  - Dizziness [Not Recovered/Not Resolved]
  - Asthenia [Not Recovered/Not Resolved]
  - Product after taste [Not Recovered/Not Resolved]
  - Therapeutic response shortened [Unknown]

NARRATIVE: CASE EVENT DATE: 20220101
